FAERS Safety Report 9790098 (Version 2)
Quarter: 2014Q3

REPORT INFORMATION
  Report Type: Spontaneous
  Country: US (occurrence: US)
  Receive Date: 20131231
  Receipt Date: 20140804
  Transmission Date: 20150326
  Serious: Yes (Death, Hospitalization, Other)
  Sender: FDA-Public Use
  Company Number: US-009507513-1312USA012407

PATIENT
  Sex: Female

DRUGS (1)
  1. NUVARING [Suspect]
     Active Substance: ETHINYL ESTRADIOL\ETONOGESTREL
     Indication: CONTRACEPTION
     Dosage: UNK
     Route: 067
     Dates: start: 20071007

REACTIONS (15)
  - Brain death [Unknown]
  - Pneumonia aspiration [Unknown]
  - Death [Fatal]
  - Pulmonary embolism [Unknown]
  - Ovarian cyst [Unknown]
  - Circulatory collapse [Unknown]
  - Brain injury [Unknown]
  - Anaemia [Recovering/Resolving]
  - Cardiac arrest [Unknown]
  - Ovarian cystectomy [Unknown]
  - Renal failure acute [Unknown]
  - Hypoxia [Unknown]
  - Acidosis [Unknown]
  - Explorative laparotomy [Unknown]
  - Deep vein thrombosis [Unknown]

NARRATIVE: CASE EVENT DATE: 201207
